FAERS Safety Report 12569316 (Version 2)
Quarter: 2016Q3

REPORT INFORMATION
  Report Type: Spontaneous
  Country: FR (occurrence: FR)
  Receive Date: 20160719
  Receipt Date: 20160923
  Transmission Date: 20161109
  Serious: Yes (Other)
  Sender: FDA-Public Use
  Company Number: FR-ASTELLAS-2016US008224

PATIENT
  Age: 57 Year
  Sex: Male
  Weight: 64 kg

DRUGS (2)
  1. XTANDI [Suspect]
     Active Substance: ENZALUTAMIDE
     Indication: PROSTATE CANCER
     Route: 048
     Dates: start: 20160115, end: 20160215
  2. ALCOHOL. [Interacting]
     Active Substance: ALCOHOL
     Indication: PRODUCT USED FOR UNKNOWN INDICATION
     Dosage: ALCOHOL DAILY, THE QUANTITY WAS 1 BOTTLE OF STRONG ALCOHOL DAILY
     Route: 065
     Dates: start: 201001

REACTIONS (3)
  - Hallucination [Recovered/Resolved]
  - Alcohol interaction [Recovered/Resolved]
  - Nightmare [Recovered/Resolved]

NARRATIVE: CASE EVENT DATE: 201001
